FAERS Safety Report 7221191-3 (Version None)
Quarter: 2011Q1

REPORT INFORMATION
  Report Type: 
  Country: None (occurrence: None)
  Receive Date: 20110103
  Receipt Date: 20101223
  Transmission Date: 20110831
  Serious: Yes (Hospitalization, Other)
  Sender: FDA-Public Use
  Company Number: 2009SP023301

PATIENT
  Age: 31 Year
  Sex: Female
  Weight: 93.8946 kg

DRUGS (2)
  1. NUVARING [Suspect]
     Indication: CONTRACEPTION
     Dates: start: 20030201, end: 20070801
  2. TYLENOL-500 [Concomitant]

REACTIONS (16)
  - WEIGHT INCREASED [None]
  - PULMONARY EMBOLISM [None]
  - FATIGUE [None]
  - MIGRAINE [None]
  - SLEEP APNOEA SYNDROME [None]
  - DYSPNOEA [None]
  - DEEP VEIN THROMBOSIS [None]
  - OSTEOARTHRITIS [None]
  - CATARACT [None]
  - UVEITIS [None]
  - DILATATION VENTRICULAR [None]
  - RENAL CYST [None]
  - OESOPHAGEAL ACHALASIA [None]
  - STAPHYLOCOCCAL INFECTION [None]
  - THROMBOSIS [None]
  - DEPRESSION [None]
